FAERS Safety Report 12798566 (Version 12)
Quarter: 2022Q4

REPORT INFORMATION
  Report Type: Spontaneous
  Country: FR (occurrence: FR)
  Receive Date: 20160930
  Receipt Date: 20221124
  Transmission Date: 20230112
  Serious: Yes (Death, Life-Threatening, Hospitalization, Other)
  Sender: FDA-Public Use
  Company Number: FR-SUN PHARMACEUTICAL INDUSTRIES LTD-2016R1-124801

PATIENT
  Age: 34 Year
  Sex: Male

DRUGS (14)
  1. QUETIAPINE [Suspect]
     Active Substance: QUETIAPINE
     Indication: Agitation
     Dosage: 600 MG, DAILY
     Route: 048
     Dates: start: 20120605
  2. QUETIAPINE [Suspect]
     Active Substance: QUETIAPINE
     Indication: Bipolar disorder
  3. QUETIAPINE [Suspect]
     Active Substance: QUETIAPINE
     Indication: Aggression
  4. DIAZEPAM [Suspect]
     Active Substance: DIAZEPAM
     Indication: Bipolar disorder
     Dosage: 30 MG, DAILY
     Route: 065
  5. VALPROIC ACID [Suspect]
     Active Substance: VALPROIC ACID
     Indication: Bipolar disorder
     Dosage: 1000 MG, DAILY
     Route: 065
     Dates: start: 20120614
  6. TRAMADOL [Suspect]
     Active Substance: TRAMADOL
     Indication: Abdominal pain
     Dosage: UNK
     Route: 065
     Dates: start: 20120625
  7. TROPATEPINE [Suspect]
     Active Substance: TROPATEPINE
     Indication: Agitation
     Dosage: 10 MG, DAILY
     Route: 065
     Dates: start: 20120605
  8. TROPATEPINE [Suspect]
     Active Substance: TROPATEPINE
     Indication: Aggression
  9. TROPATEPINE [Suspect]
     Active Substance: TROPATEPINE
     Indication: Bipolar disorder
  10. LOXAPINE [Suspect]
     Active Substance: LOXAPINE
     Indication: Bipolar disorder
     Dosage: 275 MG, DAILY
     Route: 048
     Dates: start: 20120614
  11. LOXAPINE [Suspect]
     Active Substance: LOXAPINE
     Dosage: 275+100 MG ; AS REQUIRED
     Route: 048
     Dates: start: 20120614
  12. LOXAPINE [Suspect]
     Active Substance: LOXAPINE
     Indication: Bipolar disorder
     Dosage: UNK
     Route: 030
     Dates: start: 20120625
  13. MORPHINE [Suspect]
     Active Substance: MORPHINE
     Indication: Abdominal pain
     Route: 042
     Dates: start: 20120625
  14. RISPERIDONE [Concomitant]
     Active Substance: RISPERIDONE
     Indication: Bipolar disorder
     Route: 065

REACTIONS (18)
  - Metabolic acidosis [Fatal]
  - Hepatic enzyme increased [Unknown]
  - Acute kidney injury [Fatal]
  - Multiple organ dysfunction syndrome [Fatal]
  - Bacterial infection [Fatal]
  - Fungal infection [Fatal]
  - Subileus [Fatal]
  - Necrotising colitis [Fatal]
  - Intestinal ischaemia [Fatal]
  - Large intestine perforation [Fatal]
  - Cardiac arrest [Fatal]
  - Gastric haemorrhage [Fatal]
  - Septic shock [Fatal]
  - Candida infection [Fatal]
  - Staphylococcal bacteraemia [Fatal]
  - Pneumonia pseudomonal [Fatal]
  - Colitis ischaemic [Unknown]
  - Malaise [Unknown]

NARRATIVE: CASE EVENT DATE: 20120625
